FAERS Safety Report 8545562 (Version 4)
Quarter: 2012Q4

REPORT INFORMATION
  Report Type: 
  Country: JP (occurrence: JP)
  Receive Date: 20120503
  Receipt Date: 20121001
  Transmission Date: 20130627
  Serious: Yes (Hospitalization, Other)
  Sender: FDA-Public Use
  Company Number: JP-JNJFOC-20120501520

PATIENT

DRUGS (2)
  1. SIMPONI [Suspect]
     Indication: RHEUMATOID ARTHRITIS
     Route: 058
     Dates: start: 20120404
  2. AZULFIDINE-EN [Concomitant]
     Route: 048

REACTIONS (4)
  - Interstitial lung disease [Unknown]
  - Hepatitis B [Unknown]
  - Decreased appetite [Unknown]
  - Malaise [Unknown]
